FAERS Safety Report 13273384 (Version 1)
Quarter: 2017Q1

REPORT INFORMATION
  Report Type: Spontaneous
  Country: US (occurrence: US)
  Receive Date: 20170227
  Receipt Date: 20170227
  Transmission Date: 20170428
  Serious: Yes (Other)
  Sender: FDA-Public Use
  Company Number: US-JNJFOC-20170224815

PATIENT
  Sex: Male

DRUGS (1)
  1. IMBRUVICA [Suspect]
     Active Substance: IBRUTINIB
     Indication: PRODUCT USED FOR UNKNOWN INDICATION
     Route: 065

REACTIONS (7)
  - Graft versus host disease [Unknown]
  - Haemorrhage [Unknown]
  - Lip haemorrhage [Unknown]
  - Dry mouth [Unknown]
  - Sleep disorder [Unknown]
  - Pneumonia [Unknown]
  - Mouth haemorrhage [Unknown]
